FAERS Safety Report 13346484 (Version 1)
Quarter: 2017Q1

REPORT INFORMATION
  Report Type: Spontaneous
  Country: US (occurrence: US)
  Receive Date: 20170317
  Receipt Date: 20170317
  Transmission Date: 20170428
  Serious: Yes (Other)
  Sender: FDA-Public Use
  Company Number: US-SHIRE-US201705701

PATIENT
  Age: 44 Year
  Sex: Male

DRUGS (1)
  1. VYVANSE [Suspect]
     Active Substance: LISDEXAMFETAMINE DIMESYLATE
     Indication: ATTENTION DEFICIT/HYPERACTIVITY DISORDER
     Dosage: 490 MG (7-70 MG PER DAY), 1X/DAY:QD
     Route: 048

REACTIONS (2)
  - Psychotic disorder [Unknown]
  - Prescribed overdose [Recovered/Resolved]
